FAERS Safety Report 4810105-9 (Version None)
Quarter: 2005Q4

REPORT INFORMATION
  Report Type: 
  Country: None (occurrence: None)
  Receive Date: 20051024
  Receipt Date: 20051017
  Transmission Date: 20060501
  Serious: Yes (Hospitalization)
  Sender: FDA-Public Use
  Company Number: 2005142544

PATIENT
  Age: 38 Year
  Sex: Male

DRUGS (3)
  1. XANAX [Suspect]
     Indication: ANXIETY
     Dosage: 1.5 MG (0.5 MG, 1 IN 1 D), ORAL
     Route: 048
  2. ORAP [Suspect]
     Indication: ANXIETY
     Dosage: 1 DF , ORAL
     Route: 048
  3. EFFERALGAN CODEINE (CODEINE PHOSPHATE, PARACETAMOL) [Suspect]
     Indication: ILL-DEFINED DISORDER
     Dosage: ORAL
     Route: 048
     Dates: start: 20050811, end: 20050811

REACTIONS (7)
  - DRUG ERUPTION [None]
  - EPIDERMAL NECROSIS [None]
  - HYPERKERATOSIS [None]
  - LEUKOCYTOCLASTIC VASCULITIS [None]
  - LICHENOID KERATOSIS [None]
  - LYMPHADENOPATHY [None]
  - RASH PAPULAR [None]
